FAERS Safety Report 6245397-5 (Version None)
Quarter: 2009Q2

REPORT INFORMATION
  Report Type: 
  Country: None (occurrence: None)
  Receive Date: 20090622
  Receipt Date: 20081023
  Transmission Date: 20091009
  Serious: Yes (Other)
  Sender: FDA-Public Use
  Company Number: WWISSUE-227

PATIENT

DRUGS (1)
  1. BUTALBITAL, APAP, CAFFEINE TABS,50/325/40 MG, WW [Suspect]

REACTIONS (1)
  - ABDOMINAL PAIN [None]
